FAERS Safety Report 22018580 (Version 2)
Quarter: 2023Q1

REPORT INFORMATION
  Report Type: Report from Study
  Country: MX (occurrence: MX)
  Receive Date: 20230222
  Receipt Date: 20230306
  Transmission Date: 20230417
  Serious: Yes (Other)
  Sender: FDA-Public Use
  Company Number: MX-ABBOTT-2023A-1359920

PATIENT
  Sex: Female
  Weight: 60 kg

DRUGS (6)
  1. EPIVAL [Suspect]
     Active Substance: DIVALPROEX SODIUM
     Indication: Epilepsy
     Dosage: ONE TABLET EVERY 12 HOURS
     Route: 048
     Dates: start: 201209, end: 201210
  2. SUCRALFATE [Concomitant]
     Active Substance: SUCRALFATE
     Indication: Gastric disorder
     Dosage: SHE TAKES IT SPORADICALLY
     Route: 048
  3. Evemgleafem [Concomitant]
     Indication: Blood prolactin abnormal
     Dosage: WITH A DOSE OF A QUARTER TABLET ON MONDAYS
     Route: 048
  4. EPIVAL [Suspect]
     Active Substance: DIVALPROEX SODIUM
     Indication: Epilepsy
     Dosage: ONE TABLET EVERY 12 HOURS; DAILY DOSE: 250 MG,EPIVAL SPRINKLE 125 MG
     Route: 048
     Dates: start: 201210
  5. PANTOPRAZOLE [Concomitant]
     Active Substance: PANTOPRAZOLE
     Indication: Gastritis
     Dosage: THE INTAKE IS SPORADIC
     Route: 048
  6. LEVOTHYROXINE [Concomitant]
     Active Substance: LEVOTHYROXINE
     Indication: Thyroid disorder
     Dosage: WITH DOSE OF ONE TABLET IN THE MORNINGS, RESTING FROM TAKING ON SUNDAYS
     Route: 048

REACTIONS (8)
  - Epilepsy [Unknown]
  - Depression [Unknown]
  - Drug ineffective [Unknown]
  - Hypothyroidism [Unknown]
  - Headache [Unknown]
  - Alopecia [Unknown]
  - Weight increased [Unknown]
  - Product quality issue [Unknown]

NARRATIVE: CASE EVENT DATE: 20120901
